FAERS Safety Report 6144025-7 (Version None)
Quarter: 2009Q2

REPORT INFORMATION
  Report Type: 
  Country: None (occurrence: None)
  Receive Date: 20090406
  Receipt Date: 20090327
  Transmission Date: 20091009
  Serious: Yes (Other)
  Sender: FDA-Public Use
  Company Number: FR-AMGEN-US329594

PATIENT
  Sex: Female
  Weight: 75 kg

DRUGS (2)
  1. ENBREL [Suspect]
     Indication: RHEUMATOID ARTHRITIS
     Dosage: 50 MG (FREQUENCY UNKNOWN)
     Route: 058
     Dates: start: 20080101, end: 20090101
  2. NOVATREX [Concomitant]
     Indication: RHEUMATOID ARTHRITIS
     Dosage: UNKNOWN
     Route: 048
     Dates: start: 20030101

REACTIONS (6)
  - CUTANEOUS VASCULITIS [None]
  - ERYSIPELAS [None]
  - FASCIITIS [None]
  - MYOSITIS [None]
  - PSORIASIS [None]
  - STAPHYLOCOCCAL SKIN INFECTION [None]
